FAERS Safety Report 11975432 (Version 1)
Quarter: 2016Q1

REPORT INFORMATION
  Report Type: Spontaneous
  Country: US (occurrence: US)
  Receive Date: 20160128
  Receipt Date: 20160128
  Transmission Date: 20160526
  Serious: Yes (Other)
  Sender: FDA-Public Use
  Company Number: US-HOSPIRA-2736096

PATIENT
  Sex: Female

DRUGS (1)
  1. BUPIVACAINE HYDROCHLORIDE. [Suspect]
     Active Substance: BUPIVACAINE HYDROCHLORIDE
     Indication: CAESAREAN SECTION
     Dosage: NOT REPORTED
     Route: 024

REACTIONS (2)
  - Headache [Recovered/Resolved]
  - Drug ineffective [Recovered/Resolved with Sequelae]
